FAERS Safety Report 4380588-X (Version None)
Quarter: 2004Q2

REPORT INFORMATION
  Report Type: 
  Country: None (occurrence: None)
  Receive Date: 20040618
  Receipt Date: 20040520
  Transmission Date: 20050107
  Serious: Yes (Death, Hospitalization, Other)
  Sender: FDA-Public Use
  Company Number: JP-MERCK-0405USA01696

PATIENT
  Age: 78 Year
  Sex: Male

DRUGS (2)
  1. CEFOZOPRAN HYDROCHLORIDE [Concomitant]
     Indication: ACUTE TONSILLITIS
     Route: 065
     Dates: start: 20040506, end: 20040510
  2. PRIMAXIN [Suspect]
     Indication: ACUTE TONSILLITIS
     Route: 041
     Dates: start: 20040511, end: 20040512

REACTIONS (3)
  - HEPATIC FAILURE [None]
  - LIVER DISORDER [None]
  - RESPIRATION ABNORMAL [None]
